FAERS Safety Report 11862921 (Version 1)
Quarter: 2015Q4

REPORT INFORMATION
  Report Type: Spontaneous
  Country: US (occurrence: None)
  Receive Date: 20151222
  Receipt Date: 20151222
  Transmission Date: 20160305
  Serious: Yes (Other)
  Sender: FDA-Public Use
  Company Number: None

PATIENT
  Age: 57 Year
  Sex: Female
  Weight: 56.7 kg

DRUGS (2)
  1. TYLENOL [Concomitant]
     Active Substance: ACETAMINOPHEN
  2. PREDNISOLONE ACETATE 1% SUS FALCON OPH - GENERIC FOR PRED FORTE 1% OP SUS ALCON LABORATORIES, INC . [Suspect]
     Active Substance: PREDNISOLONE ACETATE
     Indication: IRITIS
     Dates: start: 20151211, end: 20151214

REACTIONS (4)
  - Muscular weakness [None]
  - Vertigo [None]
  - Paraesthesia [None]
  - Joint stiffness [None]

NARRATIVE: CASE EVENT DATE: 20151213
